FAERS Safety Report 14969337 (Version 2)
Quarter: 2018Q3

REPORT INFORMATION
  Report Type: Spontaneous
  Country: JP (occurrence: JP)
  Receive Date: 20180604
  Receipt Date: 20180726
  Transmission Date: 20181010
  Serious: Yes (Other)
  Sender: FDA-Public Use
  Company Number: JP-PFIZER INC-2018223359

PATIENT
  Age: 87 Year
  Sex: Female
  Weight: 28.8 kg

DRUGS (2)
  1. DIFLUCAN [Suspect]
     Active Substance: FLUCONAZOLE
     Indication: PNEUMONIA CRYPTOCOCCAL
     Dosage: 100 MG, DAILY
     Route: 048
     Dates: start: 20180511, end: 20180531
  2. DIFLUCAN [Suspect]
     Active Substance: FLUCONAZOLE
     Dosage: 100 MG, 1X/DAY(ON MON/WED/FRI)
     Route: 048
     Dates: start: 20180601, end: 20180606

REACTIONS (2)
  - Disseminated cryptococcosis [Unknown]
  - Blood urea increased [Unknown]

NARRATIVE: CASE EVENT DATE: 20180531
